FAERS Safety Report 8861495 (Version 2)
Quarter: 2013Q2

REPORT INFORMATION
  Report Type: Spontaneous
  Country: US (occurrence: None)
  Receive Date: 20120426
  Receipt Date: 20120703
  Transmission Date: 20140414
  Serious: Yes (Other)
  Sender: FDA-Public Use
  Company Number: PHEH2012US002495

PATIENT
  Age: 34 Year
  Sex: Male
  Weight: 63.9 kg

DRUGS (15)
  1. GILENYA [Suspect]
     Indication: MULTIPLE SCLEROSIS
     Route: 048
     Dates: start: 20111219
  2. XANAX (ALPRAZOLAM) [Concomitant]
  3. NEURONTIN (GABAPENTIN) [Concomitant]
  4. WELLBUTRINI (BUPROPION HYDROCHLORIDE) [Concomitant]
  5. NEXIUM (ESOMEPRAZOLE MAGNESIUM) [Concomitant]
  6. VITAMIN D (ERGOCALCIFEROL) [Concomitant]
  7. PERCOCET [Concomitant]
  8. VYVANSE (LISDEXAMFETAMINE DIMESYLATE) [Concomitant]
  9. FLONASE (FLUTICASONE PROPIONATE) [Concomitant]
  10. CELEXA (CITALOPRAM HYDROBROMIDE) [Concomitant]
  11. PROAIR HFA (ALBUTEROL SULFATE) INHALATION AEROSOL [Concomitant]
  12. TRIAMCINOLONE ACETONIDE (TRIAMCINOLONE ACETONIDE) [Concomitant]
  13. DRISDOL (ERGOCALCIFEROL) [Concomitant]
  14. SOLU-MEDROL (METHYLPREDNISOLONE SODIUM SUCCINATE) [Concomitant]
  15. ABILIFY (ARIPIPRAZOLE) [Concomitant]

REACTIONS (9)
  - Visual impairment [None]
  - Hypoaesthesia [None]
  - Tremor [None]
  - Paraesthesia [None]
  - Candida infection [None]
  - Neutrophil count increased [None]
  - Lymphocyte count decreased [None]
  - Aspartate aminotransferase increased [None]
  - Alanine aminotransferase increased [None]
